FAERS Safety Report 8415157-5 (Version None)
Quarter: 2012Q2

REPORT INFORMATION
  Report Type: 
  Country: None (occurrence: None)
  Receive Date: 20120606
  Receipt Date: 20120529
  Transmission Date: 20120825
  Serious: No
  Sender: FDA-Public Use
  Company Number: US-PFIZER INC-2012099548

PATIENT
  Sex: Female
  Weight: 82.54 kg

DRUGS (2)
  1. LYRICA [Suspect]
     Indication: NEURALGIA
     Dosage: 100 MG, 3X/DAY
     Route: 048
     Dates: start: 20050101
  2. NORVASC [Suspect]
     Indication: HYPERTENSION
     Dosage: 5 MG,DAILY
     Route: 048
     Dates: start: 20110601

REACTIONS (1)
  - BACK DISORDER [None]
